FAERS Safety Report 12306507 (Version 1)
Quarter: 2016Q2

REPORT INFORMATION
  Report Type: Spontaneous
  Country: GB (occurrence: GB)
  Receive Date: 20160426
  Receipt Date: 20160426
  Transmission Date: 20160815
  Serious: Yes (Other)
  Sender: FDA-Public Use
  Company Number: GB-JNJFOC-20160422566

PATIENT
  Age: 83 Year
  Sex: Female
  Weight: 59 kg

DRUGS (6)
  1. NITRAZEPAM [Concomitant]
     Active Substance: NITRAZEPAM
     Route: 065
     Dates: start: 20150914
  2. XARELTO [Suspect]
     Active Substance: RIVAROXABAN
     Indication: PRODUCT USED FOR UNKNOWN INDICATION
     Route: 048
     Dates: start: 20150914
  3. BISOPROLOL [Concomitant]
     Active Substance: BISOPROLOL
     Route: 065
     Dates: start: 20150914
  4. FUROSEMIDE. [Concomitant]
     Active Substance: FUROSEMIDE
     Route: 065
     Dates: start: 20150914
  5. LEVOTHYROXINE. [Concomitant]
     Active Substance: LEVOTHYROXINE
     Route: 065
     Dates: start: 20150914
  6. AMIAS [Concomitant]
     Active Substance: CANDESARTAN CILEXETIL
     Route: 065
     Dates: start: 20150914

REACTIONS (2)
  - Neovascular age-related macular degeneration [Not Recovered/Not Resolved]
  - Retinal haemorrhage [Not Recovered/Not Resolved]

NARRATIVE: CASE EVENT DATE: 20160412
